FAERS Safety Report 6161983-5 (Version None)
Quarter: 2009Q2

REPORT INFORMATION
  Report Type: 
  Country: None (occurrence: None)
  Receive Date: 20090417
  Receipt Date: 20090417
  Transmission Date: 20091009
  Serious: Yes (Other)
  Sender: FDA-Public Use
  Company Number: None

PATIENT
  Age: 20 Year
  Sex: Male
  Weight: 73.9363 kg

DRUGS (2)
  1. LAMICTAL [Suspect]
     Indication: CONVULSION
     Dosage: 25MG TWICE A DAY PO
     Route: 048
  2. PHENYTOIN [Suspect]
     Indication: CONVULSION
     Dosage: 100MG ONCE A DAY PO
     Route: 048

REACTIONS (7)
  - AMNESIA [None]
  - COORDINATION ABNORMAL [None]
  - DIZZINESS [None]
  - FATIGUE [None]
  - HYPOPHAGIA [None]
  - MENTAL IMPAIRMENT [None]
  - OROPHARYNGEAL PAIN [None]
